FAERS Safety Report 18596798 (Version 2)
Quarter: 2020Q4

REPORT INFORMATION
  Report Type: Spontaneous
  Country: FR (occurrence: FR)
  Receive Date: 20201209
  Receipt Date: 20201222
  Transmission Date: 20210114
  Serious: Yes (Other)
  Sender: FDA-Public Use
  Company Number: FR-ALLERGAN-2038478US

PATIENT
  Age: 68 Year
  Sex: Male
  Weight: 85 kg

DRUGS (1)
  1. OZURDEX [Suspect]
     Active Substance: DEXAMETHASONE
     Indication: MACULAR OEDEMA
     Dosage: 0.7 MG, SINGLE
     Route: 031
     Dates: start: 20200928, end: 20200928

REACTIONS (7)
  - Intraocular pressure increased [Recovering/Resolving]
  - Visual acuity reduced [Not Recovered/Not Resolved]
  - Corneal oedema [Not Recovered/Not Resolved]
  - Complication of device insertion [Unknown]
  - Device breakage [Unknown]
  - Device dislocation [Unknown]
  - Hypertonia [Unknown]

NARRATIVE: CASE EVENT DATE: 202009
